FAERS Safety Report 16264660 (Version 1)
Quarter: 2019Q2

REPORT INFORMATION
  Report Type: Spontaneous
  Country: US (occurrence: US)
  Receive Date: 20190502
  Receipt Date: 20190502
  Transmission Date: 20190711
  Serious: No
  Sender: FDA-Public Use
  Company Number: US-PFIZER INC-2019184067

PATIENT
  Sex: Female

DRUGS (1)
  1. LINEZOLID. [Suspect]
     Active Substance: LINEZOLID
     Dosage: 600 MG, DAILY (600MG PO (ORAL) DAILY)
     Route: 048

REACTIONS (2)
  - Product use issue [Unknown]
  - Drug intolerance [Unknown]
